FAERS Safety Report 19447967 (Version 1)
Quarter: 2021Q2

REPORT INFORMATION
  Report Type: Spontaneous
  Country: US (occurrence: US)
  Receive Date: 20210621
  Receipt Date: 20210621
  Transmission Date: 20210717
  Serious: No
  Sender: FDA-Public Use
  Company Number: None

PATIENT
  Age: 86 Year
  Sex: Male
  Weight: 66 kg

DRUGS (2)
  1. IPILIMUMAB (IPILIMUMAB 5MG/ML INJ, SOLN, 10ML [Suspect]
     Active Substance: IPILIMUMAB
     Dates: start: 20210416, end: 20210501
  2. NIVOLUMAB (NIVOLUMAB 10MG/ML INJ, SOLN) [Suspect]
     Active Substance: NIVOLUMAB
     Indication: RENAL CANCER
     Dates: start: 20210416, end: 20210501

REACTIONS (6)
  - Eyelid ptosis [None]
  - Asthenia [None]
  - Respiratory depression [None]
  - Myasthenia gravis [None]
  - Respiratory distress [None]
  - Myositis [None]

NARRATIVE: CASE EVENT DATE: 20210519
